FAERS Safety Report 15158518 (Version 1)
Quarter: 2018Q3

REPORT INFORMATION
  Report Type: Spontaneous
  Country: US (occurrence: US)
  Receive Date: 20180620
  Receipt Date: 20180620
  Transmission Date: 20181010
  Serious: No
  Sender: FDA-Public Use
  Company Number: None

PATIENT
  Age: 64 Year
  Sex: Male
  Weight: 59.06 kg

DRUGS (1)
  1. IRINOTECAN VIAL [Suspect]
     Active Substance: IRINOTECAN HYDROCHLORIDE
     Indication: PANCREATIC CARCINOMA
     Dosage: ?          OTHER FREQUENCY:EVERY 2 WKS;?
     Route: 017
     Dates: start: 20180619

REACTIONS (4)
  - Discomfort [None]
  - Infusion related reaction [None]
  - Tongue disorder [None]
  - Dysarthria [None]

NARRATIVE: CASE EVENT DATE: 20180619
